FAERS Safety Report 10744928 (Version 2)
Quarter: 2015Q1

REPORT INFORMATION
  Report Type: Spontaneous
  Country: FR (occurrence: FR)
  Receive Date: 20150128
  Receipt Date: 20150203
  Transmission Date: 20150721
  Serious: Yes (Hospitalization)
  Sender: FDA-Public Use
  Company Number: FR-PFIZER INC-2015025079

PATIENT
  Age: 92 Year
  Sex: Female

DRUGS (11)
  1. HEPTAMYL [Concomitant]
     Active Substance: HEPTAMINOL HYDROCHLORIDE
  2. ASPEGIC [Concomitant]
     Active Substance: ASPIRIN DL-LYSINE
     Dosage: 100 MG, DAILY
  3. FLECAINE [Concomitant]
     Active Substance: FLECAINIDE
     Dosage: 150 MG, DAILY
  4. PARIET [Concomitant]
     Active Substance: RABEPRAZOLE SODIUM
     Dosage: 10 MG, 1X/DAY, IN THE EVENING
  5. BRYSSIDINE [Concomitant]
  6. AROMASIN [Suspect]
     Active Substance: EXEMESTANE
     Indication: BREAST CANCER
     Dosage: 25 MG, 1X/DAY
     Route: 048
     Dates: start: 2010, end: 20141017
  7. EBIXA [Concomitant]
     Active Substance: MEMANTINE HYDROCHLORIDE
     Dosage: 20 MG, DAILY
  8. MONURIL ^APOGEPHA^ [Concomitant]
  9. TANAKAN [Concomitant]
     Active Substance: GINKGO
  10. PRAXILENE [Concomitant]
     Active Substance: NAFRONYL
     Dosage: 200 MG, UNK
  11. UVEDOSE [Concomitant]
     Active Substance: CHOLECALCIFEROL

REACTIONS (3)
  - Pulmonary embolism [Unknown]
  - Malaise [Unknown]
  - General physical health deterioration [Unknown]

NARRATIVE: CASE EVENT DATE: 20141013
